FAERS Safety Report 24160643 (Version 1)
Quarter: 2024Q3

REPORT INFORMATION
  Report Type: Spontaneous
  Country: US (occurrence: US)
  Receive Date: 20240801
  Receipt Date: 20240801
  Transmission Date: 20241017
  Serious: Yes (Other)
  Sender: ALKEM
  Company Number: US-ALKEM LABORATORIES LIMITED-US-ALKEM-2024-12616

PATIENT
  Age: 74 Year
  Sex: Female

DRUGS (1)
  1. ITRACONAZOLE [Suspect]
     Active Substance: ITRACONAZOLE
     Indication: Onychomycosis
     Dosage: 100 MILLIGRAM, BID (EVERY 12 HOURS)
     Route: 065

REACTIONS (1)
  - Hepatotoxicity [Recovering/Resolving]
